FAERS Safety Report 5292358-9 (Version None)
Quarter: 2007Q2

REPORT INFORMATION
  Report Type: 
  Country: None (occurrence: None)
  Receive Date: 20070410
  Receipt Date: 20070403
  Transmission Date: 20071010
  Serious: Yes (Hospitalization)
  Sender: FDA-Public Use
  Company Number: TW-ROXANE LABORATORIES, INC-2007-BP-04602RO

PATIENT
  Age: 22 Year
  Sex: Male

DRUGS (3)
  1. CLARITHROMYCIN [Suspect]
     Indication: HELICOBACTER GASTRITIS
     Route: 048
  2. OMEPRAZOLE [Suspect]
     Indication: HELICOBACTER GASTRITIS
     Route: 048
  3. METRONIDAZOLE [Suspect]
     Indication: HELICOBACTER GASTRITIS
     Route: 048

REACTIONS (5)
  - CHEST PAIN [None]
  - DYSPEPSIA [None]
  - HICCUPS [None]
  - NAUSEA [None]
  - PNEUMOMEDIASTINUM [None]
